FAERS Safety Report 6312241-7 (Version None)
Quarter: 2009Q3

REPORT INFORMATION
  Report Type: 
  Country: None (occurrence: None)
  Receive Date: 20090817
  Receipt Date: 20090811
  Transmission Date: 20100115
  Serious: Yes (Other)
  Sender: FDA-Public Use
  Company Number: US-SANOFI-SYNTHELABO-A03200903513

PATIENT
  Sex: Female

DRUGS (5)
  1. PREDNISONE [Concomitant]
     Indication: STEROID THERAPY
     Dosage: UNK
     Route: 065
     Dates: start: 19980101
  2. BLOOD PRESSURE MEDICATIONS [Concomitant]
     Indication: HYPERTENSION
     Dosage: UNK
     Route: 065
  3. ASPIRIN [Suspect]
     Indication: STENT PLACEMENT
     Route: 048
     Dates: start: 20070901
  4. ASPIRIN [Suspect]
     Route: 048
     Dates: start: 20090701
  5. PLAVIX [Suspect]
     Indication: STENT PLACEMENT
     Route: 048
     Dates: start: 20070901, end: 20090716

REACTIONS (2)
  - BLINDNESS [None]
  - RETINAL HAEMORRHAGE [None]
